FAERS Safety Report 19671306 (Version 3)
Quarter: 2021Q3

REPORT INFORMATION
  Report Type: Spontaneous
  Country: BR (occurrence: BR)
  Receive Date: 20210806
  Receipt Date: 20210916
  Transmission Date: 20211014
  Serious: Yes (Hospitalization)
  Sender: FDA-Public Use
  Company Number: BR-BIOGEN-2021BI01035914

PATIENT
  Age: 34 Year
  Sex: Female
  Weight: 78.2 kg

DRUGS (4)
  1. METHYLPREDNISOLONE. [Concomitant]
     Active Substance: METHYLPREDNISOLONE
     Indication: PREMEDICATION
     Route: 042
     Dates: start: 20210721, end: 20210721
  2. DIFENIDRIN (DIPHENHYDRAMINE HYDROCHLORIDE) [Concomitant]
     Indication: PREMEDICATION
     Route: 042
     Dates: start: 20210721, end: 20210721
  3. TYSABRI [Suspect]
     Active Substance: NATALIZUMAB
     Route: 042
     Dates: start: 20210721
  4. TYSABRI [Suspect]
     Active Substance: NATALIZUMAB
     Indication: MULTIPLE SCLEROSIS
     Route: 042
     Dates: start: 202105

REACTIONS (3)
  - Anaphylactic shock [Recovered/Resolved]
  - Hypoaesthesia oral [Unknown]
  - Hypoaesthesia [Unknown]

NARRATIVE: CASE EVENT DATE: 202105
